FAERS Safety Report 5958372-2 (Version None)
Quarter: 2008Q4

REPORT INFORMATION
  Report Type: 
  Country: None (occurrence: None)
  Receive Date: 20081110
  Receipt Date: 20081012
  Transmission Date: 20090506
  Serious: Yes (Death)
  Sender: FDA-Public Use
  Company Number: CHPA2008US18051

PATIENT
  Age: 58 Year
  Sex: Female

DRUGS (7)
  1. ACETAMINOPHEN (PARACETAMOL), DIPHENHYDRAMINE HYDROCHLORIDE (NCH)(ACETA [Suspect]
     Dosage: ORAL
     Route: 048
  2. METHADONE HCL [Suspect]
     Dosage: ORAL
     Route: 048
  3. ALL OTHER THERAPEUTIC PRODUCTS (NO INGREDIENTS/SUBSTANCES) [Suspect]
     Dosage: ORAL
     Route: 048
  4. METOPROLOL TARTRATE [Suspect]
     Dosage: ORAL
     Route: 048
  5. ALPRAZOLAM [Concomitant]
     Dosage: ORAL
     Route: 048
  6. HYDROCODONE BITARTRATE + ACETAMINOPHEN [Suspect]
     Dosage: ORAL
     Route: 048
  7. ETHANOL (ETHANOL) [Suspect]
     Dosage: ORAL
     Route: 048

REACTIONS (1)
  - INTENTIONAL DRUG MISUSE [None]
